FAERS Safety Report 5292527-8 (Version None)
Quarter: 2007Q2

REPORT INFORMATION
  Report Type: 
  Country: None (occurrence: None)
  Receive Date: 20070410
  Receipt Date: 20070329
  Transmission Date: 20071010
  Serious: Yes (Death)
  Sender: FDA-Public Use
  Company Number: FR-PFIZER INC-2007025972

PATIENT
  Age: 71 Year
  Sex: Female

DRUGS (17)
  1. NEURONTIN [Suspect]
     Indication: NEUROPATHY PERIPHERAL
     Dosage: TEXT:3 DF
     Route: 048
  2. OFLOXACIN [Suspect]
     Indication: SEPSIS
     Route: 048
     Dates: start: 20061004, end: 20061014
  3. DARBEPOETIN ALFA [Suspect]
     Indication: ANAEMIA
     Dosage: TEXT:1 DF
     Route: 058
  4. ESOMEPRAZOLE MAGNESIUM [Suspect]
     Dosage: TEXT:1 DF
     Route: 048
     Dates: start: 20061007, end: 20061011
  5. FUROSEMIDE [Suspect]
     Indication: CARDIAC FAILURE
     Route: 048
     Dates: start: 20060915, end: 20061013
  6. ACENOCOUMAROL [Suspect]
     Route: 048
  7. LEVOTHYROXINE SODIUM [Concomitant]
  8. HELM COTRIMOXAZOLE [Concomitant]
  9. SIMVASTATIN [Concomitant]
  10. LOSARTAN POSTASSIUM [Concomitant]
  11. VALACYCLOVIR HCL [Concomitant]
  12. PANTOPRAZOLE [Concomitant]
  13. LYNESTRENOL [Concomitant]
  14. ALUMINUM HYDROXIDE GEL [Concomitant]
  15. CEFOTAXIME [Concomitant]
     Dates: start: 20061001, end: 20061004
  16. AMIKACIN [Concomitant]
     Dates: start: 20061002, end: 20061004
  17. GENTAMICIN [Concomitant]
     Dates: start: 20061002, end: 20061004

REACTIONS (1)
  - TOXIC EPIDERMAL NECROLYSIS [None]
